FAERS Safety Report 7389867-5 (Version None)
Quarter: 2011Q2

REPORT INFORMATION
  Report Type: 
  Country: None (occurrence: None)
  Receive Date: 20110401
  Receipt Date: 20110323
  Transmission Date: 20111010
  Serious: Yes (Death)
  Sender: FDA-Public Use
  Company Number: CA-CELGENEUS-028-50794-11022749

PATIENT

DRUGS (1)
  1. VIDAZA [Suspect]
     Route: 065

REACTIONS (4)
  - SEPSIS [None]
  - NO THERAPEUTIC RESPONSE [None]
  - DISEASE PROGRESSION [None]
  - NEUTROPENIA [None]
